FAERS Safety Report 18659981 (Version 1)
Quarter: 2020Q4

REPORT INFORMATION
  Report Type: Spontaneous
  Country: PL (occurrence: PL)
  Receive Date: 20201224
  Receipt Date: 20201224
  Transmission Date: 20210114
  Serious: Yes (Other)
  Sender: FDA-Public Use
  Company Number: PL-BAYER-2020-283748

PATIENT
  Age: 34 Year
  Sex: Female

DRUGS (1)
  1. KYLEENA [Suspect]
     Active Substance: LEVONORGESTREL
     Dosage: 17.5 ?G PER DAY CONTINUOUSLY
     Route: 015
     Dates: start: 20190830, end: 20201207

REACTIONS (5)
  - Abdominal pain lower [Recovered/Resolved]
  - Sarcoidosis [None]
  - Pelvic pain [Recovered/Resolved]
  - Medical procedure [None]
  - Renal mass [None]

NARRATIVE: CASE EVENT DATE: 2020
